FAERS Safety Report 6236469-X (Version None)
Quarter: 2009Q2

REPORT INFORMATION
  Report Type: 
  Country: None (occurrence: None)
  Receive Date: 20090619
  Receipt Date: 20090609
  Transmission Date: 20091009
  Serious: No
  Sender: FDA-Public Use
  Company Number: B0577279A

PATIENT
  Age: 25 Year
  Sex: Female

DRUGS (1)
  1. ALLI [Suspect]
     Dosage: 60MG THREE TIMES PER DAY
     Route: 065
     Dates: start: 20090515, end: 20090522

REACTIONS (6)
  - ABDOMINAL PAIN [None]
  - FLATULENCE [None]
  - GASTRITIS [None]
  - INCONTINENCE [None]
  - MUSCLE SPASMS [None]
  - NAUSEA [None]
